FAERS Safety Report 22371411 (Version 4)
Quarter: 2023Q4

REPORT INFORMATION
  Report Type: Spontaneous
  Country: US (occurrence: US)
  Receive Date: 20230526
  Receipt Date: 20231116
  Transmission Date: 20240110
  Serious: Yes (Other)
  Sender: FDA-Public Use
  Company Number: US-BRISTOL-MYERS SQUIBB COMPANY-2023-074587

PATIENT
  Age: 71 Year
  Sex: Female

DRUGS (2)
  1. REVLIMID [Suspect]
     Active Substance: LENALIDOMIDE
     Indication: Plasma cell myeloma
     Dosage: FREQUENCY: 21
     Route: 048
  2. REVLIMID [Suspect]
     Active Substance: LENALIDOMIDE
     Route: 048

REACTIONS (7)
  - Fall [Unknown]
  - Contusion [Unknown]
  - Diarrhoea [Unknown]
  - Decreased appetite [Unknown]
  - Laboratory test abnormal [Unknown]
  - Pain [Unknown]
  - Dysuria [Unknown]

NARRATIVE: CASE EVENT DATE: 20230623
